FAERS Safety Report 6227920-X (Version None)
Quarter: 2009Q2

REPORT INFORMATION
  Report Type: 
  Country: None (occurrence: None)
  Receive Date: 20090612
  Receipt Date: 20090602
  Transmission Date: 20091009
  Serious: Yes (Death)
  Sender: FDA-Public Use
  Company Number: DE-ROCHE-636866

PATIENT

DRUGS (3)
  1. CYMEVENE [Suspect]
     Indication: CYTOMEGALOVIRUS INFECTION
     Route: 065
     Dates: start: 20050101, end: 20050101
  2. RITUXIMAB [Concomitant]
     Indication: DRUG USE FOR UNKNOWN INDICATION
     Route: 065
     Dates: start: 20050101, end: 20050101
  3. IMMUNOSUPPRESSANTS NOS [Concomitant]
     Indication: DRUG USE FOR UNKNOWN INDICATION
     Route: 065
     Dates: start: 20050101, end: 20050101

REACTIONS (1)
  - ACUTE RESPIRATORY DISTRESS SYNDROME [None]
